FAERS Safety Report 6239908-3 (Version None)
Quarter: 2009Q2

REPORT INFORMATION
  Report Type: 
  Country: None (occurrence: None)
  Receive Date: 20090618
  Receipt Date: 20090618
  Transmission Date: 20091009
  Serious: No
  Sender: FDA-Public Use
  Company Number: None

PATIENT
  Sex: Female
  Weight: 58.9676 kg

DRUGS (2)
  1. COLD REMEDY NASAL GEL ZICAM [Suspect]
     Indication: NASOPHARYNGITIS
     Dosage: ONE SPRAY PER NOSTRIL EVERY 4 HOURS NASAL
     Route: 045
  2. COLD REMEDY NASAL SWABS ZICAM [Suspect]
     Indication: NASOPHARYNGITIS
     Dosage: ONE SWIPE PER NOSTRIL EVERY 4 HOURS NASAL
     Route: 045

REACTIONS (1)
  - HYPOSMIA [None]
